FAERS Safety Report 6691332-5 (Version None)
Quarter: 2010Q2

REPORT INFORMATION
  Report Type: 
  Country: None (occurrence: None)
  Receive Date: 20100422
  Receipt Date: 20100413
  Transmission Date: 20101027
  Serious: Yes (Hospitalization)
  Sender: FDA-Public Use
  Company Number: NZ-JNJFOC-20100306830

PATIENT
  Sex: Female

DRUGS (4)
  1. RISPERDAL CONSTA [Suspect]
     Indication: SCHIZOPHRENIA
     Route: 030
  2. RISPERDAL CONSTA [Suspect]
     Route: 030
  3. RISPERDAL CONSTA [Suspect]
     Indication: PSYCHOTIC DISORDER
     Route: 030
  4. RISPERDAL CONSTA [Suspect]
     Route: 030

REACTIONS (9)
  - DELUSION [None]
  - DISTURBANCE IN ATTENTION [None]
  - FEELING ABNORMAL [None]
  - HEAD DISCOMFORT [None]
  - PHOTOSENSITIVITY REACTION [None]
  - REFUSAL OF TREATMENT BY PATIENT [None]
  - TREATMENT NONCOMPLIANCE [None]
  - WEIGHT DECREASED [None]
  - WEIGHT INCREASED [None]
